FAERS Safety Report 17352818 (Version 1)
Quarter: 2020Q1

REPORT INFORMATION
  Report Type: Report from Study
  Country: US (occurrence: US)
  Receive Date: 20200131
  Receipt Date: 20200131
  Transmission Date: 20200409
  Serious: Yes (Other)
  Sender: FDA-Public Use
  Company Number: US-ROCHE-2532554

PATIENT
  Sex: Female

DRUGS (3)
  1. OCREVUS [Suspect]
     Active Substance: OCRELIZUMAB
     Indication: RELAPSING MULTIPLE SCLEROSIS
     Dosage: PREVIOUS DATE OF TREATMENT: 19/SEP/2019?ANTICIPATED DATE OF TREATMENT: 15/MARCH/2020
     Route: 065
  2. MIRENA [Concomitant]
     Active Substance: LEVONORGESTREL
     Dosage: INTRA UTERAL
     Route: 015
  3. ADDERALL [Concomitant]
     Active Substance: AMPHETAMINE ASPARTATE\AMPHETAMINE SULFATE\DEXTROAMPHETAMINE SACCHARATE\DEXTROAMPHETAMINE SULFATE
     Indication: FATIGUE
     Route: 048

REACTIONS (1)
  - JC polyomavirus test positive [Unknown]
